FAERS Safety Report 7872068 (Version 2)
Quarter: 2012Q4

REPORT INFORMATION
  Report Type: 
  Country: DE (occurrence: DE)
  Receive Date: 20110325
  Receipt Date: 20120905
  Transmission Date: 20130627
  Serious: Yes (Death, Other)
  Sender: FDA-Public Use
  Company Number: PHHO2010DE05322

PATIENT
  Age: 57 Year
  Sex: Male
  Weight: 72 kg

DRUGS (7)
  1. SIMULECT / CHI 621A / SDZ CHI 621 [Suspect]
     Indication: IMMUNOSUPPRESSION
     Dosage: 20mg
     Route: 042
     Dates: start: 20091019
  2. TACROLIMUS [Suspect]
     Indication: IMMUNOSUPPRESSION
     Dosage: 5mg
     Route: 048
     Dates: start: 20091019
  3. CELLCEPT [Suspect]
     Indication: IMMUNOSUPPRESSION
     Dosage: 1000mg twice dialy
     Route: 048
     Dates: start: 20091019
  4. DECORTIN [Suspect]
     Indication: IMMUNOSUPPRESSION
     Dosage: 7.5
     Route: 048
     Dates: start: 20091019
  5. MERONEM [Concomitant]
  6. AVALOX [Concomitant]
  7. VANCOMYCIN [Concomitant]

REACTIONS (8)
  - Venous injury [Fatal]
  - Shock haemorrhagic [Fatal]
  - Intra-abdominal haemorrhage [Fatal]
  - Haemorrhagic anaemia [Fatal]
  - Thrombocytopenia [Fatal]
  - Glomerulonephritis [Unknown]
  - Aneurysm [Unknown]
  - Renal failure acute [Unknown]
